FAERS Safety Report 23082528 (Version 1)
Quarter: 2023Q4

REPORT INFORMATION
  Report Type: Other
  Country: IN (occurrence: None)
  Receive Date: 20231019
  Receipt Date: 20231019
  Transmission Date: 20240110
  Serious: Yes (Death)
  Sender: FDA-Public Use
  Company Number: IN-ROCHE-3440531

PATIENT
  Age: 70 Year
  Sex: Female

DRUGS (1)
  1. GAZYVA [Suspect]
     Active Substance: OBINUTUZUMAB
     Indication: Follicular lymphoma
     Route: 042
     Dates: start: 20230619

REACTIONS (1)
  - Death [Fatal]

NARRATIVE: CASE EVENT DATE: 20230801
